FAERS Safety Report 8179277-5 (Version None)
Quarter: 2012Q1

REPORT INFORMATION
  Report Type: 
  Country: None (occurrence: None)
  Receive Date: 20120229
  Receipt Date: 20120217
  Transmission Date: 20120608
  Serious: Yes (Other)
  Sender: FDA-Public Use
  Company Number: 2012SP009205

PATIENT
  Age: 82 Year
  Sex: Male

DRUGS (1)
  1. VICTRELIS [Suspect]
     Indication: PRODUCT USED FOR UNKNOWN INDICATION
     Dosage: 800 MG;TID;PO
     Route: 048

REACTIONS (5)
  - BLOOD GLUCOSE INCREASED [None]
  - STOMATITIS [None]
  - BLOOD GLUCOSE DECREASED [None]
  - MEMORY IMPAIRMENT [None]
  - ANAEMIA [None]
